FAERS Safety Report 8164297-7 (Version None)
Quarter: 2012Q1

REPORT INFORMATION
  Report Type: 
  Country: None (occurrence: None)
  Receive Date: 20120224
  Receipt Date: 20110310
  Transmission Date: 20120608
  Serious: No
  Sender: FDA-Public Use
  Company Number: US-MYLANLABS-2011S1004876

PATIENT
  Age: 70 Year
  Sex: Female

DRUGS (3)
  1. ATENOLOL [Suspect]
     Route: 048
     Dates: start: 20110101
  2. ACIPHEX [Concomitant]
     Indication: GASTROOESOPHAGEAL REFLUX DISEASE
     Route: 048
  3. ATENOLOL [Suspect]
     Indication: BLOOD PRESSURE INCREASED
     Route: 048
     Dates: start: 19900101

REACTIONS (4)
  - DRUG EFFECT DECREASED [None]
  - BLOOD PRESSURE INCREASED [None]
  - INTENTIONAL DRUG MISUSE [None]
  - DIZZINESS [None]
